FAERS Safety Report 8189801-4 (Version None)
Quarter: 2012Q1

REPORT INFORMATION
  Report Type: 
  Country: None (occurrence: None)
  Receive Date: 20120307
  Receipt Date: 20110518
  Transmission Date: 20120608
  Serious: No
  Sender: FDA-Public Use
  Company Number: US-GLAXOSMITHKLINE-A0928367A

PATIENT
  Age: 53 Year
  Sex: Female

DRUGS (5)
  1. LISINOPRIL [Concomitant]
  2. CARBIDOPA AND LEVODOPA [Concomitant]
  3. SIMVASTATIN [Concomitant]
  4. CARBAMAZEPINE [Concomitant]
  5. REQUIP [Suspect]
     Indication: RESTLESS LEGS SYNDROME
     Dosage: 25MG UNKNOWN
     Route: 048
     Dates: start: 20110408, end: 20110504

REACTIONS (1)
  - DRUG INEFFECTIVE [None]
